FAERS Safety Report 7518060-8 (Version None)
Quarter: 2011Q2

REPORT INFORMATION
  Report Type: 
  Country: None (occurrence: None)
  Receive Date: 20110523
  Receipt Date: 20110516
  Transmission Date: 20111010
  Serious: Yes (Death, Hospitalization)
  Sender: FDA-Public Use
  Company Number: 2009AC000162

PATIENT
  Age: 69 Year
  Sex: Male

DRUGS (20)
  1. CLINORIL [Concomitant]
  2. DELTASONE [Concomitant]
  3. XANAX [Concomitant]
  4. FUROSEMIDE [Concomitant]
  5. K-DUR [Concomitant]
  6. IM GOLD [Concomitant]
  7. VITAMIN TAB [Concomitant]
  8. LISINOPRIL [Concomitant]
  9. IBUPROFEN [Concomitant]
  10. ISOSORB DIN [Concomitant]
  11. PREDNISONE [Concomitant]
  12. SOLGANAL [Concomitant]
  13. PROCARDIA [Concomitant]
  14. LASIX [Concomitant]
  15. METHOTREXATE [Concomitant]
  16. DEPO-MEDROL [Concomitant]
  17. VALPROIC ACID [Concomitant]
  18. DIGOXIN [Suspect]
     Indication: CARDIAC FAILURE CONGESTIVE
     Dosage: 0.25 MG, PO
     Route: 048
     Dates: start: 19900101, end: 20080224
  19. CARAFATE [Concomitant]
  20. ARAVA [Concomitant]

REACTIONS (26)
  - DEPRESSION [None]
  - ACUTE PULMONARY OEDEMA [None]
  - SYNOVITIS [None]
  - BRADYCARDIA [None]
  - ECONOMIC PROBLEM [None]
  - AORTIC VALVE INCOMPETENCE [None]
  - PARAESTHESIA [None]
  - CARDIAC MURMUR [None]
  - PULMONARY CONGESTION [None]
  - HEPATIC CIRRHOSIS [None]
  - VENTRICULAR FIBRILLATION [None]
  - HYPERTENSION [None]
  - ARTERIOSCLEROSIS [None]
  - RESPIRATORY ARREST [None]
  - FAMILY STRESS [None]
  - CARDIAC ARREST [None]
  - PULSELESS ELECTRICAL ACTIVITY [None]
  - EPISTAXIS [None]
  - AORTIC STENOSIS [None]
  - SUPRAVENTRICULAR EXTRASYSTOLES [None]
  - MYOCARDIAL ISCHAEMIA [None]
  - MULTIPLE INJURIES [None]
  - RHEUMATOID ARTHRITIS [None]
  - DIZZINESS [None]
  - MITRAL VALVE INCOMPETENCE [None]
  - ANXIETY [None]
